FAERS Safety Report 8248376-1 (Version None)
Quarter: 2012Q1

REPORT INFORMATION
  Report Type: 
  Country: None (occurrence: None)
  Receive Date: 20120330
  Receipt Date: 20120315
  Transmission Date: 20120608
  Serious: Yes (Other)
  Sender: FDA-Public Use
  Company Number: DK-WATSON-2012-05145

PATIENT
  Sex: Female
  Weight: 73.6 kg

DRUGS (16)
  1. PAROXETINE HYDROCHLORIDE [Suspect]
     Indication: DEPRESSION
     Dosage: 20 MG, BID
     Route: 065
     Dates: start: 20090223
  2. PAROXETINE HYDROCHLORIDE [Concomitant]
     Indication: PRODUCT USED FOR UNKNOWN INDICATION
     Dosage: UNK
     Route: 065
     Dates: end: 20100101
  3. IBUMETIN [Concomitant]
     Indication: PAIN
     Dosage: 600 MG, TID
     Route: 065
     Dates: start: 20061201
  4. ACETAMINOPHEN [Concomitant]
     Indication: NECK PAIN
     Dosage: UNK
     Route: 065
     Dates: start: 20060816
  5. MIGEA [Suspect]
     Indication: MIGRAINE
     Dosage: 200 MG, DAILY
     Route: 065
     Dates: start: 20100618, end: 20100813
  6. MAGNESIUM HYDROXIDE TAB [Concomitant]
     Indication: PRODUCT USED FOR UNKNOWN INDICATION
     Route: 048
  7. TRUXAL                             /00012101/ [Suspect]
     Indication: PSYCHOTIC DISORDER
     Dosage: UNK
     Route: 065
     Dates: start: 20061201, end: 20110801
  8. MIRTAZAPINE [Suspect]
     Indication: ANXIETY
     Dosage: 15 MG, DAILY
     Route: 065
     Dates: start: 20060320
  9. NORTRIPTYLINE HCL [Suspect]
     Indication: DEPRESSION
     Dosage: 25 MG, BID
     Route: 065
     Dates: start: 20090223, end: 20110701
  10. EFFEXOR [Suspect]
     Indication: PRODUCT USED FOR UNKNOWN INDICATION
     Dosage: 150 MG, UNKNOWN
     Route: 065
     Dates: start: 20060928, end: 20081101
  11. MIANSERIN [Suspect]
     Indication: DEPRESSION
     Dosage: 10 MG, DAILY
     Dates: start: 20080925, end: 20081201
  12. TRAMADOL HCL [Suspect]
     Indication: HEADACHE
     Dosage: UNK
     Route: 065
     Dates: start: 20060816, end: 20061201
  13. MAGNESIUM HYDROXIDE TAB [Concomitant]
     Route: 048
  14. IMOVANE [Suspect]
     Indication: INSOMNIA
     Dosage: 7.5 MG, UNKNOWN
     Route: 065
     Dates: start: 20060405, end: 20110401
  15. IBUPROFEN [Suspect]
     Indication: HEADACHE
     Dosage: UNK
     Route: 065
     Dates: start: 20041201, end: 20110301
  16. PAMOL [Concomitant]
     Indication: PAIN
     Dosage: UNK
     Route: 065
     Dates: start: 20061201

REACTIONS (8)
  - GASTROOESOPHAGEAL REFLUX DISEASE [None]
  - DYSPEPSIA [None]
  - OEDEMA [None]
  - FAECES HARD [None]
  - CONSTIPATION [None]
  - RECTAL HAEMORRHAGE [None]
  - ABDOMINAL DISTENSION [None]
  - HAEMORRHOIDS [None]
